FAERS Safety Report 7628334-8 (Version None)
Quarter: 2011Q3

REPORT INFORMATION
  Report Type: 
  Country: None (occurrence: None)
  Receive Date: 20110714
  Receipt Date: 20110628
  Transmission Date: 20111222
  Serious: Yes (Other)
  Sender: FDA-Public Use
  Company Number: 2011AP001352

PATIENT
  Age: 61 Year
  Sex: Male

DRUGS (3)
  1. TOPIRAMATE [Suspect]
     Indication: EPILEPSY
  2. PHENYTOIN [Suspect]
     Indication: EPILEPSY
  3. PREGABALIN [Suspect]
     Indication: EPILEPSY

REACTIONS (7)
  - CONVULSION [None]
  - CONDITION AGGRAVATED [None]
  - MACULAR OEDEMA [None]
  - RETINAL EXUDATES [None]
  - BLOOD HOMOCYSTEINE INCREASED [None]
  - RETINAL VEIN OCCLUSION [None]
  - RETINAL HAEMORRHAGE [None]
